FAERS Safety Report 8361462-0 (Version None)
Quarter: 2012Q2

REPORT INFORMATION
  Report Type: 
  Country: None (occurrence: None)
  Receive Date: 20120514
  Receipt Date: 20120426
  Transmission Date: 20120825
  Serious: Yes (Death, Hospitalization, Other)
  Sender: FDA-Public Use
  Company Number: 2012SGN00134

PATIENT
  Age: 25 Year
  Sex: Male

DRUGS (1)
  1. ADCETRIS [Suspect]
     Indication: HODGKIN'S DISEASE

REACTIONS (8)
  - MUCOSAL INFLAMMATION [None]
  - PNEUMONIA [None]
  - PULMONARY ALVEOLAR HAEMORRHAGE [None]
  - EPSTEIN-BARR VIRUS INFECTION [None]
  - ACUTE RESPIRATORY DISTRESS SYNDROME [None]
  - POST PROCEDURAL COMPLICATION [None]
  - HISTIOCYTOSIS HAEMATOPHAGIC [None]
  - STEM CELL TRANSPLANT [None]
